FAERS Safety Report 24357252 (Version 3)
Quarter: 2024Q4

REPORT INFORMATION
  Report Type: Report from Study
  Country: MX (occurrence: MX)
  Receive Date: 20240924
  Receipt Date: 20241021
  Transmission Date: 20250114
  Serious: Yes (Death, Hospitalization, Other)
  Sender: NOVARTIS
  Company Number: MX-002147023-NVSC2024MX189345

PATIENT
  Age: 74 Year
  Sex: Male

DRUGS (4)
  1. AFINITOR [Suspect]
     Active Substance: EVEROLIMUS
     Indication: Pancreatic carcinoma
     Dosage: 10 MG, QD
     Route: 048
     Dates: start: 20240707, end: 20240806
  2. AFINITOR [Suspect]
     Active Substance: EVEROLIMUS
     Dosage: 7.5 MG, QD STRENGTH: 2.5 MG)
     Route: 048
     Dates: start: 20240713, end: 20240826
  3. AFINITOR [Suspect]
     Active Substance: EVEROLIMUS
     Dosage: 5 MG, QD
     Route: 048
     Dates: start: 20240807, end: 20240825
  4. AFINITOR [Suspect]
     Active Substance: EVEROLIMUS
     Dosage: 2.5 MG, QD
     Route: 048

REACTIONS (7)
  - Hypoglycaemia [Fatal]
  - Lung disorder [Fatal]
  - Pulmonary fibrosis [Fatal]
  - Bacterial infection [Fatal]
  - Immunosuppression [Fatal]
  - Respiratory failure [Fatal]
  - Metastasis [Unknown]

NARRATIVE: CASE EVENT DATE: 20240701
